FAERS Safety Report 24336302 (Version 1)
Quarter: 2024Q3

REPORT INFORMATION
  Report Type: Spontaneous
  Country: KR (occurrence: KR)
  Receive Date: 20240919
  Receipt Date: 20240919
  Transmission Date: 20241016
  Serious: No
  Sender: ROCHE
  Company Number: KR-ROCHE-3555829

PATIENT
  Age: 41 Year

DRUGS (1)
  1. TAMIFLU [Suspect]
     Active Substance: OSELTAMIVIR PHOSPHATE
     Indication: Product used for unknown indication
     Dosage: FREQUENCY: ADMINISTRATION INTERVAL: 0.5, INTERVAL PERIOD: 5 DAY
     Route: 065
     Dates: start: 20230104, end: 20230109

REACTIONS (2)
  - Nausea [Recovered/Resolved]
  - Pain [Recovered/Resolved]

NARRATIVE: CASE EVENT DATE: 20230104
